FAERS Safety Report 9321948 (Version 2)
Quarter: 2013Q2

REPORT INFORMATION
  Report Type: Report from Study
  Country: US (occurrence: US)
  Receive Date: 20130531
  Receipt Date: 20130614
  Transmission Date: 20140414
  Serious: Yes (Hospitalization)
  Sender: FDA-Public Use
  Company Number: US-PFIZER INC-2013161547

PATIENT
  Age: 56 Year
  Sex: Female

DRUGS (5)
  1. CARBOPLATIN [Suspect]
     Indication: HEAD AND NECK CANCER METASTATIC
     Dosage: UNK
     Dates: start: 20121011
  2. OXYCODONE HYDROCHLORIDE [Suspect]
     Dosage: UNK
  3. TEMSIROLIMUS [Suspect]
     Indication: HEAD AND NECK CANCER METASTATIC
     Dosage: UNK
     Dates: start: 20121011
  4. TAXOL [Suspect]
     Indication: HEAD AND NECK CANCER METASTATIC
     Dosage: UNK
     Dates: start: 20121011
  5. BENADRYL [Suspect]
     Dosage: UNK

REACTIONS (1)
  - Mental status changes [Recovered/Resolved]
